FAERS Safety Report 6326480-2 (Version None)
Quarter: 2009Q3

REPORT INFORMATION
  Report Type: 
  Country: None (occurrence: None)
  Receive Date: 20090821
  Receipt Date: 20090812
  Transmission Date: 20100115
  Serious: Yes (Hospitalization)
  Sender: FDA-Public Use
  Company Number: A-CH2009-26864

PATIENT
  Age: 74 Year
  Sex: Female

DRUGS (11)
  1. TRACLEER [Suspect]
     Indication: SKIN ULCER
     Dosage: 62.5 MG, BID, ORAL
     Route: 048
     Dates: start: 20090701
  2. METHOTREXATE [Concomitant]
  3. PREDNISONE TAB [Concomitant]
  4. ATENOLOL [Concomitant]
  5. OMEPRAZOLE [Concomitant]
  6. VERAPAMIL [Concomitant]
  7. SIMVASTATIN [Concomitant]
  8. ALENDRONAT (ALENDRONATE SODIUM) [Concomitant]
  9. VITAMIN D [Concomitant]
  10. BROTIZOLAM (BROTIZOLAM) [Concomitant]
  11. RAMIPRIL [Concomitant]

REACTIONS (2)
  - ANAEMIA [None]
  - PULMONARY OEDEMA [None]
